FAERS Safety Report 5836825-5 (Version None)
Quarter: 2008Q3

REPORT INFORMATION
  Report Type: 
  Country: None (occurrence: None)
  Receive Date: 20080807
  Receipt Date: 20080728
  Transmission Date: 20090109
  Serious: Yes (Hospitalization, Other)
  Sender: FDA-Public Use
  Company Number: A0727466A

PATIENT
  Age: 19 Year
  Sex: Female

DRUGS (1)
  1. ZOFRAN [Suspect]
     Indication: NAUSEA
     Route: 042
     Dates: start: 20080505, end: 20080505

REACTIONS (9)
  - ABORTION INFECTED [None]
  - ABORTION SPONTANEOUS [None]
  - CHORIOAMNIONITIS [None]
  - DRUG EXPOSURE DURING PREGNANCY [None]
  - ERYTHEMA [None]
  - FOETAL HYPOKINESIA [None]
  - HYPERSENSITIVITY [None]
  - PYREXIA [None]
  - UMBILICAL CORD ABNORMALITY [None]
